FAERS Safety Report 11941429 (Version 1)
Quarter: 2016Q1

REPORT INFORMATION
  Report Type: Spontaneous
  Country: US (occurrence: US)
  Receive Date: 20160122
  Receipt Date: 20160122
  Transmission Date: 20160526
  Serious: No
  Sender: FDA-Public Use
  Company Number: US-ALLERGAN-1402935US

PATIENT
  Age: 89 Year
  Sex: Female

DRUGS (2)
  1. OCUFLOX [Suspect]
     Active Substance: OFLOXACIN
     Indication: EYE DISCHARGE
     Dosage: 1 DROP TO BOTH EYES TWICE A DAY
     Route: 047
     Dates: start: 201309, end: 201309
  2. TEARS NATURALE FREE [Concomitant]
     Active Substance: DEXTRAN 70\HYPROMELLOSE 2910 (4000 MPA.S)
     Indication: EYE LUBRICATION THERAPY
     Dosage: 1 DROP THROUGHOUT THE DAY
     Route: 047

REACTIONS (1)
  - Drug ineffective [Unknown]
